APPROVED DRUG PRODUCT: TENOFOVIR DISOPROXIL FUMARATE
Active Ingredient: TENOFOVIR DISOPROXIL FUMARATE
Strength: 250MG
Dosage Form/Route: TABLET;ORAL
Application: A206569 | Product #003
Applicant: PHARMOBEDIENT CONSULTING LLC
Approved: Nov 27, 2018 | RLD: No | RS: No | Type: DISCN